FAERS Safety Report 14660200 (Version 2)
Quarter: 2018Q2

REPORT INFORMATION
  Report Type: Spontaneous
  Country: JP (occurrence: JP)
  Receive Date: 20180320
  Receipt Date: 20180423
  Transmission Date: 20180711
  Serious: Yes (Hospitalization)
  Sender: FDA-Public Use
  Company Number: JP-BAYER-2018-048350

PATIENT
  Age: 70 Year
  Sex: Male
  Weight: 63.8 kg

DRUGS (2)
  1. STIVARGA [Suspect]
     Active Substance: REGORAFENIB
     Indication: COLORECTAL CANCER RECURRENT
     Dosage: DAILY DOSE 80 MG,2 WEEKS CONSECUTIVE ADMINISTRATION THEN 1 WEEK INTERRUPTION
     Route: 048
     Dates: start: 20180124, end: 20180206
  2. STIVARGA [Suspect]
     Active Substance: REGORAFENIB
     Indication: COLORECTAL CANCER RECURRENT
     Dosage: DAILY DOSE 120 MG, 7 DAYS CONSECUTIVE ADMINISTRATION THEN 7 DAYS INTERRUPTION
     Route: 048
     Dates: start: 20180110, end: 20180117

REACTIONS (7)
  - Neutrophil count decreased [Recovered/Resolved]
  - Nephrotic syndrome [Not Recovered/Not Resolved]
  - Palmar-plantar erythrodysaesthesia syndrome [Recovered/Resolved]
  - Proteinuria [Not Recovered/Not Resolved]
  - Hypoproteinaemia [Not Recovered/Not Resolved]
  - Hypercholesterolaemia [Not Recovered/Not Resolved]
  - Oedema [Not Recovered/Not Resolved]

NARRATIVE: CASE EVENT DATE: 20180117
